FAERS Safety Report 12987648 (Version 2)
Quarter: 2016Q4

REPORT INFORMATION
  Report Type: Spontaneous
  Country: US (occurrence: US)
  Receive Date: 20161130
  Receipt Date: 20161202
  Transmission Date: 20170207
  Serious: No
  Sender: FDA-Public Use
  Company Number: US-BAYER-2016-225692

PATIENT
  Age: 60 Year
  Sex: Male
  Weight: 69.84 kg

DRUGS (3)
  1. MIRALAX [Suspect]
     Active Substance: POLYETHYLENE GLYCOL 3350
     Indication: COLONOSCOPY
  2. DULCOLAX PICOSULFAT [Concomitant]
     Indication: COLONOSCOPY
     Dosage: UNK
     Dates: start: 201606, end: 201607
  3. MIRALAX [Suspect]
     Active Substance: POLYETHYLENE GLYCOL 3350
     Indication: GASTROINTESTINAL DISORDER
     Dosage: 1 DF, UNK
     Route: 048
     Dates: start: 2016

REACTIONS (3)
  - Off label use [Unknown]
  - Therapeutic response increased [Unknown]
  - Diarrhoea [Unknown]

NARRATIVE: CASE EVENT DATE: 20161124
